FAERS Safety Report 16573638 (Version 3)
Quarter: 2019Q3

REPORT INFORMATION
  Report Type: Spontaneous
  Country: US (occurrence: US)
  Receive Date: 20190715
  Receipt Date: 20190815
  Transmission Date: 20191004
  Serious: Yes (Other)
  Sender: FDA-Public Use
  Company Number: US-ELI_LILLY_AND_COMPANY-US201907004707

PATIENT
  Sex: Female

DRUGS (7)
  1. EMGALITY [Suspect]
     Active Substance: GALCANEZUMAB-GNLM
     Indication: MIGRAINE
     Dosage: UNK, UNKNOWN
     Route: 058
     Dates: start: 20190327
  2. KLONOPIN [Concomitant]
     Active Substance: CLONAZEPAM
  3. MIDODRINE [Concomitant]
     Active Substance: MIDODRINE
  4. BUTABARBITAL [Concomitant]
     Active Substance: BUTABARBITAL
  5. ZOLOFT [Concomitant]
     Active Substance: SERTRALINE HYDROCHLORIDE
     Dosage: UNK
  6. LYRICA [Concomitant]
     Active Substance: PREGABALIN
  7. TYLENOL WITH CODEINE [Concomitant]
     Active Substance: ACETAMINOPHEN\CODEINE PHOSPHATE

REACTIONS (8)
  - Fluid intake reduced [Unknown]
  - Autoimmune disorder [Unknown]
  - Migraine [Unknown]
  - Speech disorder [Unknown]
  - Drug ineffective [Unknown]
  - Incorrect dose administered [Unknown]
  - Insomnia [Unknown]
  - Photophobia [Unknown]

NARRATIVE: CASE EVENT DATE: 20190327
